FAERS Safety Report 15534922 (Version 2)
Quarter: 2018Q4

REPORT INFORMATION
  Report Type: Spontaneous
  Country: US (occurrence: US)
  Receive Date: 20181022
  Receipt Date: 20181213
  Transmission Date: 20190205
  Serious: No
  Sender: FDA-Public Use
  Company Number: US-JNJFOC-20181013545

PATIENT
  Sex: Male

DRUGS (21)
  1. AMLODIPINE BESYLATE. [Concomitant]
     Active Substance: AMLODIPINE BESYLATE
     Route: 065
  2. BRILINTA [Concomitant]
     Active Substance: TICAGRELOR
     Route: 065
  3. ZYTIGA [Suspect]
     Active Substance: ABIRATERONE ACETATE
     Indication: PROSTATE CANCER METASTATIC
     Route: 048
     Dates: start: 2016
  4. ASPIRIN. [Concomitant]
     Active Substance: ASPIRIN
     Route: 065
  5. GABAPENTIN. [Concomitant]
     Active Substance: GABAPENTIN
     Route: 065
  6. HYDROMORPHONE [Concomitant]
     Active Substance: HYDROMORPHONE
     Route: 065
  7. TEMAZEPAM. [Concomitant]
     Active Substance: TEMAZEPAM
     Route: 065
  8. SLO-NIACIN [Concomitant]
     Active Substance: NIACIN
     Route: 065
  9. PREDNISONE. [Concomitant]
     Active Substance: PREDNISONE
     Indication: PROSTATE CANCER METASTATIC
     Route: 065
  10. LISINOPRIL. [Concomitant]
     Active Substance: LISINOPRIL
     Route: 065
  11. CLONIDINE. [Concomitant]
     Active Substance: CLONIDINE
     Indication: BLOOD PRESSURE MEASUREMENT
     Route: 065
  12. TIZANIDINE. [Concomitant]
     Active Substance: TIZANIDINE
     Route: 065
  13. METOPROLOL. [Concomitant]
     Active Substance: METOPROLOL
     Route: 065
  14. XGEVA [Concomitant]
     Active Substance: DENOSUMAB
     Route: 065
  15. ELIGARD [Concomitant]
     Active Substance: LEUPROLIDE ACETATE
     Route: 065
  16. VITAMIN D3 [Concomitant]
     Active Substance: CHOLECALCIFEROL
     Indication: PROPHYLAXIS
     Route: 065
  17. NITROSTAT [Concomitant]
     Active Substance: NITROGLYCERIN
     Route: 065
  18. ATORVASTATIN [Concomitant]
     Active Substance: ATORVASTATIN
     Route: 065
  19. TRAMADOL. [Concomitant]
     Active Substance: TRAMADOL
     Route: 065
  20. CALCIUM [Concomitant]
     Active Substance: CALCIUM
     Indication: PROPHYLAXIS
     Route: 065
  21. XANAX [Concomitant]
     Active Substance: ALPRAZOLAM
     Route: 065

REACTIONS (4)
  - Swelling [Unknown]
  - Incorrect dose administered [Unknown]
  - Off label use [Unknown]
  - Blood pressure decreased [Unknown]
